FAERS Safety Report 10050204 (Version 1)
Quarter: 2014Q1

REPORT INFORMATION
  Report Type: Spontaneous
  Country: US (occurrence: None)
  Receive Date: 20140331
  Receipt Date: 20140331
  Transmission Date: 20141002
  Serious: Yes (Hospitalization)
  Sender: FDA-Public Use
  Company Number: None

PATIENT
  Age: 17 Year
  Sex: Female
  Weight: 54.43 kg

DRUGS (1)
  1. DOXY [Suspect]
     Indication: LYME DISEASE
     Dosage: INJECTION
     Dates: start: 20140303, end: 20140303

REACTIONS (2)
  - Convulsion [None]
  - Product quality issue [None]
